FAERS Safety Report 21513630 (Version 1)
Quarter: 2022Q4

REPORT INFORMATION
  Report Type: Spontaneous
  Country: US (occurrence: None)
  Receive Date: 20221027
  Receipt Date: 20221027
  Transmission Date: 20230113
  Serious: Yes (Death, Hospitalization)
  Sender: FDA-Public Use
  Company Number: None

PATIENT
  Age: 71 Year
  Sex: Male
  Weight: 108.6 kg

DRUGS (3)
  1. CASODEX [Suspect]
     Active Substance: BICALUTAMIDE
     Dates: end: 20211101
  2. LEUPROLIDE ACETATE [Suspect]
     Active Substance: LEUPROLIDE ACETATE
     Dates: end: 20211101
  3. PREDNISONE [Suspect]
     Active Substance: PREDNISONE
     Dates: end: 20211101

REACTIONS (1)
  - Death [None]

NARRATIVE: CASE EVENT DATE: 20211214
